FAERS Safety Report 15237404 (Version 2)
Quarter: 2018Q3

REPORT INFORMATION
  Report Type: Spontaneous
  Country: IT (occurrence: IT)
  Receive Date: 20180803
  Receipt Date: 20180809
  Transmission Date: 20181010
  Serious: Yes (Other)
  Sender: FDA-Public Use
  Company Number: PHHY2018IT015784

PATIENT
  Age: 37 Year
  Sex: Female

DRUGS (10)
  1. PANACEF [Suspect]
     Active Substance: CEFACLOR
     Dosage: 5 %, IN PETROLIUM
     Route: 061
  2. KEFORAL [Suspect]
     Active Substance: CEPHALEXIN
     Dosage: 20 MG/ML IN 0.9% SODIUM CHLORIDE
     Route: 023
  3. KEFORAL [Suspect]
     Active Substance: CEPHALEXIN
     Indication: PRODUCT USED FOR UNKNOWN INDICATION
     Dosage: 2 MG/DL, IN 0.9% SODIUM CHLORIDE
     Route: 023
  4. PANACEF [Suspect]
     Active Substance: CEFACLOR
     Indication: PRODUCT USED FOR UNKNOWN INDICATION
     Dosage: 2 MG/ML, IN 0.9% SODIUM CHLORIDE
     Route: 023
  5. KEFORAL [Suspect]
     Active Substance: CEPHALEXIN
     Dosage: 5 %, IN PETROLATUM
     Route: 061
  6. AMOXICILLIN. [Suspect]
     Active Substance: AMOXICILLIN
     Indication: PRODUCT USED FOR UNKNOWN INDICATION
     Dosage: UNK
     Route: 065
  7. KEFORAL [Suspect]
     Active Substance: CEPHALEXIN
     Dosage: 2 MG/ML, IN 0.9% SODIUM CHLORIDE
     Route: 023
  8. PANACEF [Suspect]
     Active Substance: CEFACLOR
     Dosage: 20 MG/ML IN 0.9% SODIUM CHLORIDE.
     Route: 023
  9. AMOXICILLIN+CLAVULANIC ACID [Suspect]
     Active Substance: AMOXICILLIN\CLAVULANIC ACID
     Indication: PRODUCT USED FOR UNKNOWN INDICATION
     Dosage: UNK
     Route: 065
  10. PANACEF [Suspect]
     Active Substance: CEFACLOR
     Dosage: 2 MG/ML, IN 0.9% SODIUM CHLORIDE
     Route: 023

REACTIONS (4)
  - Therapeutic product cross-reactivity [Unknown]
  - Rash maculo-papular [Unknown]
  - Oedema [Unknown]
  - Type IV hypersensitivity reaction [Unknown]
